FAERS Safety Report 10154884 (Version 1)
Quarter: 2014Q2

REPORT INFORMATION
  Report Type: Spontaneous
  Country: US (occurrence: None)
  Receive Date: 20140505
  Receipt Date: 20140505
  Transmission Date: 20141212
  Serious: Yes (Other)
  Sender: FDA-Public Use
  Company Number: None

PATIENT
  Age: 62 Year
  Sex: Male

DRUGS (4)
  1. LUPRON DEPOT [Suspect]
     Indication: PROSTATE CANCER
     Route: 030
     Dates: start: 20121019, end: 20140502
  2. RAPAFLO [Concomitant]
  3. CELEBREX [Concomitant]
  4. AZOR [Concomitant]

REACTIONS (3)
  - Myalgia [None]
  - Muscle spasms [None]
  - Arthralgia [None]
